FAERS Safety Report 9637163 (Version 1)
Quarter: 2013Q4

REPORT INFORMATION
  Report Type: Spontaneous
  Country: CA (occurrence: CA)
  Receive Date: 20131022
  Receipt Date: 20131022
  Transmission Date: 20140711
  Serious: Yes (Hospitalization, Other)
  Sender: FDA-Public Use
  Company Number: CA-PURDUE-CAN-2013-0004497

PATIENT
  Age: 29 Year
  Sex: Male

DRUGS (15)
  1. OXYCONTIN TABLETS [Suspect]
     Indication: PRODUCT USED FOR UNKNOWN INDICATION
     Dosage: UNK
     Route: 048
  2. OXYCONTIN TABLETS [Suspect]
     Indication: PAIN
     Dosage: UNK
     Route: 045
  3. PERCOCET /00867901/ [Suspect]
     Indication: PRODUCT USED FOR UNKNOWN INDICATION
     Dosage: UNK
     Route: 048
  4. PERCOCET /00867901/ [Suspect]
     Indication: PAIN
     Dosage: UNK
     Route: 045
  5. BENZODIAZEPINE RELATED DRUGS [Suspect]
     Indication: PRODUCT USED FOR UNKNOWN INDICATION
     Dosage: UNK
     Route: 048
  6. BENZODIAZEPINE RELATED DRUGS [Suspect]
     Dosage: UNK
     Route: 045
  7. ZANTAC [Suspect]
     Indication: PRODUCT USED FOR UNKNOWN INDICATION
     Dosage: UNK
     Route: 048
  8. ZANTAC [Suspect]
     Dosage: UNK
     Route: 045
  9. ANABOLIC STEROIDS [Suspect]
     Indication: PRODUCT USED FOR UNKNOWN INDICATION
  10. ATIVAN [Suspect]
     Indication: PRODUCT USED FOR UNKNOWN INDICATION
     Dosage: UNK
     Route: 048
  11. ATIVAN [Suspect]
     Dosage: UNK
     Route: 045
  12. VALIUM /00017001/ [Suspect]
     Indication: PRODUCT USED FOR UNKNOWN INDICATION
     Dosage: UNK
     Route: 048
  13. VALIUM /00017001/ [Suspect]
     Dosage: UNK
     Route: 045
  14. COCAINE [Suspect]
     Indication: PRODUCT USED FOR UNKNOWN INDICATION
     Dosage: UNK
     Route: 065
  15. METHYLENEDIOXYMETHAMPHETAMINE [Suspect]
     Indication: PRODUCT USED FOR UNKNOWN INDICATION
     Dosage: UNK
     Route: 065

REACTIONS (10)
  - Drug dependence [Unknown]
  - Substance abuse [Unknown]
  - Psychotic disorder [Unknown]
  - Aggression [Unknown]
  - Gun shot wound [Unknown]
  - Hallucination, visual [Unknown]
  - Euphoric mood [Unknown]
  - Sedation [Unknown]
  - Weight increased [Unknown]
  - Abnormal behaviour [Unknown]
